FAERS Safety Report 25126319 (Version 2)
Quarter: 2025Q2

REPORT INFORMATION
  Report Type: Report from Study
  Country: CA (occurrence: CA)
  Receive Date: 20250327
  Receipt Date: 20250403
  Transmission Date: 20250716
  Serious: Yes (Hospitalization, Other)
  Sender: TAKEDA
  Company Number: CA-TAKEDA-2025TUS030033

PATIENT
  Sex: Female

DRUGS (5)
  1. VEDOLIZUMAB [Suspect]
     Active Substance: VEDOLIZUMAB
     Indication: Colitis ulcerative
     Dates: start: 20250221, end: 20250311
  2. Salofalk [Concomitant]
     Dosage: 500 MILLIGRAM, QD
     Dates: start: 20240906
  3. Salofalk [Concomitant]
  4. PREDNISONE [Concomitant]
     Active Substance: PREDNISONE
  5. VITAMIN D [Concomitant]
     Active Substance: VITAMIN D NOS

REACTIONS (1)
  - Colitis ulcerative [Unknown]
